FAERS Safety Report 6369093-9 (Version None)
Quarter: 2009Q3

REPORT INFORMATION
  Report Type: 
  Country: None (occurrence: None)
  Receive Date: 20090922
  Receipt Date: 20090922
  Transmission Date: 20100115
  Serious: Yes (Hospitalization)
  Sender: FDA-Public Use
  Company Number: PHHO2008SE14843

PATIENT
  Sex: Female

DRUGS (6)
  1. NO TREATMENT RECEIVED NOMED [Suspect]
     Indication: HYPERTENSION
     Dosage: NO TREATMENT
     Route: 048
  2. PLACEBO [Suspect]
     Indication: HYPERTENSION
     Dosage: RUN IN PHASE
     Route: 048
     Dates: start: 20081201, end: 20081204
  3. TROMBYL [Concomitant]
     Indication: THROMBOSIS PROPHYLAXIS
     Dosage: 75 MG, QD
     Route: 048
     Dates: start: 20080211
  4. ATACAND [Concomitant]
     Indication: HYPERTENSION
     Dosage: 24 MG, QD
     Route: 048
     Dates: start: 20081014, end: 20090121
  5. AMLODIPINE [Concomitant]
     Indication: HYPERTENSION
     Dosage: 5 MG, QD
     Route: 048
     Dates: start: 20081013, end: 20081126
  6. AMLODIPINE [Concomitant]
     Dosage: 5 MG, QD
     Route: 048
     Dates: start: 20081204

REACTIONS (9)
  - BLOOD POTASSIUM DECREASED [None]
  - CHILLS [None]
  - DIARRHOEA [None]
  - GASTROENTERITIS [None]
  - HEADACHE [None]
  - HYPERTENSION [None]
  - NAUSEA [None]
  - PYREXIA [None]
  - VOMITING [None]
